FAERS Safety Report 20790245 (Version 1)
Quarter: 2022Q2

REPORT INFORMATION
  Report Type: Spontaneous
  Country: US (occurrence: US)
  Receive Date: 20220505
  Receipt Date: 20220505
  Transmission Date: 20220721
  Serious: No
  Sender: FDA-Public Use
  Company Number: US-MYLANLABS-2022M1031865

PATIENT
  Sex: Female

DRUGS (1)
  1. CLONIDINE TRANSDERMAL SYSTEM [Suspect]
     Active Substance: CLONIDINE
     Indication: Blood pressure abnormal
     Dosage: 0.2 MILLIGRAM, QD
     Route: 062
     Dates: start: 20220408

REACTIONS (4)
  - Dermatitis contact [Unknown]
  - Application site vesicles [Unknown]
  - Drug ineffective [Unknown]
  - Wrong technique in product usage process [Unknown]

NARRATIVE: CASE EVENT DATE: 20220401
